FAERS Safety Report 8083553-4 (Version None)
Quarter: 2012Q1

REPORT INFORMATION
  Report Type: 
  Country: None (occurrence: None)
  Receive Date: 20120127
  Receipt Date: 20110117
  Transmission Date: 20120608
  Serious: No
  Sender: FDA-Public Use
  Company Number: US-ABBOTT-11P-163-0698508-00

PATIENT
  Sex: Female
  Weight: 49.94 kg

DRUGS (5)
  1. PREDNISONE TAB [Concomitant]
     Indication: RHEUMATOID ARTHRITIS
     Dates: start: 20110102
  2. HUMIRA [Suspect]
     Indication: RHEUMATOID ARTHRITIS
     Route: 058
     Dates: start: 20100801
  3. METHOTREXATE [Concomitant]
     Dosage: 7 TABLETS ON SUNDAY
     Dates: end: 20101219
  4. METHOTREXATE [Concomitant]
     Indication: RHEUMATOID ARTHRITIS
     Dosage: 6 TABLETS ON SUNDAY
     Dates: start: 20101219
  5. PREDNISONE TAB [Concomitant]
     Dates: end: 20110102

REACTIONS (2)
  - INJECTION SITE HAEMORRHAGE [None]
  - INJECTION SITE HAEMATOMA [None]
